FAERS Safety Report 15931670 (Version 3)
Quarter: 2020Q1

REPORT INFORMATION
  Report Type: Spontaneous
  Country: US (occurrence: US)
  Receive Date: 20190207
  Receipt Date: 20200225
  Transmission Date: 20200409
  Serious: Yes (Hospitalization, Other)
  Sender: FDA-Public Use
  Company Number: US-ASTRAZENECA-2018SF26084

PATIENT
  Age: 46 Year
  Sex: Female

DRUGS (59)
  1. NEXIUM [Suspect]
     Active Substance: ESOMEPRAZOLE MAGNESIUM
     Indication: GASTROOESOPHAGEAL REFLUX DISEASE
     Dosage: GENERIC
     Route: 048
     Dates: start: 20130912
  2. NEXIUM 24HR [Suspect]
     Active Substance: ESOMEPRAZOLE MAGNESIUM
     Route: 048
  3. ZOLPIDEM [Concomitant]
     Active Substance: ZOLPIDEM TARTRATE
     Route: 048
  4. GABAPENTIN. [Concomitant]
     Active Substance: GABAPENTIN
     Route: 048
  5. ZANTAC [Concomitant]
     Active Substance: RANITIDINE HYDROCHLORIDE
     Indication: ULCER
  6. VITAMIN C [Concomitant]
     Active Substance: ASCORBIC ACID
  7. ATIVAN [Concomitant]
     Active Substance: LORAZEPAM
  8. LINACLOTIDE [Concomitant]
     Active Substance: LINACLOTIDE
  9. ONDANSETRON [Concomitant]
     Active Substance: ONDANSETRON
  10. HYDROCHLOROTHIAZIDE. [Concomitant]
     Active Substance: HYDROCHLOROTHIAZIDE
     Route: 048
  11. ZANAFLEX [Concomitant]
     Active Substance: TIZANIDINE HYDROCHLORIDE
  12. NALOXEGOL [Concomitant]
     Active Substance: NALOXEGOL
  13. CLONIDINE. [Concomitant]
     Active Substance: CLONIDINE
  14. GLUCOTROL [Concomitant]
     Active Substance: GLIPIZIDE
  15. DUPHALAC [Concomitant]
     Active Substance: LACTULOSE
  16. MIRALAX [Concomitant]
     Active Substance: POLYETHYLENE GLYCOL 3350
     Route: 048
  17. GLUCOPHAGE [Concomitant]
     Active Substance: METFORMIN HYDROCHLORIDE
     Route: 048
  18. NEXIUM [Suspect]
     Active Substance: ESOMEPRAZOLE MAGNESIUM
     Indication: GASTROOESOPHAGEAL REFLUX DISEASE
     Route: 048
     Dates: start: 2010
  19. QUETIAPINE. [Concomitant]
     Active Substance: QUETIAPINE
     Route: 048
  20. BENADRYL [Concomitant]
     Active Substance: DIPHENHYDRAMINE HYDROCHLORIDE
     Indication: MULTIPLE ALLERGIES
     Dates: start: 2017
  21. MYLANTA [Concomitant]
     Active Substance: ALUMINUM HYDROXIDE\DIMETHICONE\MAGNESIUM HYDROXIDE
  22. PERCOCET [Concomitant]
     Active Substance: ACETAMINOPHEN\OXYCODONE HYDROCHLORIDE
  23. NORVASC [Concomitant]
     Active Substance: AMLODIPINE BESYLATE
  24. VENTOLINE [Concomitant]
     Active Substance: ALBUTEROL
  25. DESYREL [Concomitant]
     Active Substance: TRAZODONE HYDROCHLORIDE
  26. NORCO [Concomitant]
     Active Substance: ACETAMINOPHEN\HYDROCODONE BITARTRATE
  27. ROCALTROL [Concomitant]
     Active Substance: CALCITRIOL
     Route: 048
  28. AMBIEN [Concomitant]
     Active Substance: ZOLPIDEM TARTRATE
  29. SIMVASTATIN. [Concomitant]
     Active Substance: SIMVASTATIN
  30. PREDNISONE. [Concomitant]
     Active Substance: PREDNISONE
  31. NYSTOP [Concomitant]
     Active Substance: NYSTATIN
  32. NEXIUM [Suspect]
     Active Substance: ESOMEPRAZOLE MAGNESIUM
     Indication: GASTROOESOPHAGEAL REFLUX DISEASE
     Route: 048
     Dates: start: 2002, end: 2016
  33. CYCLOBENZAPRINE. [Concomitant]
     Active Substance: CYCLOBENZAPRINE
     Route: 048
  34. SEROQUEL [Concomitant]
     Active Substance: QUETIAPINE FUMARATE
  35. CLARITIN [Concomitant]
     Active Substance: LORATADINE
  36. BACTRIM [Concomitant]
     Active Substance: SULFAMETHOXAZOLE\TRIMETHOPRIM
  37. OXYCODONE [Concomitant]
     Active Substance: OXYCODONE
     Dosage: 5-325MG IN EVERY 6HR
     Route: 048
  38. PRENATAL VITAMINS [Concomitant]
     Active Substance: VITAMINS
  39. REGLAN [Concomitant]
     Active Substance: METOCLOPRAMIDE HYDROCHLORIDE
  40. COLCHICINE. [Concomitant]
     Active Substance: COLCHICINE
  41. NEXIUM [Suspect]
     Active Substance: ESOMEPRAZOLE MAGNESIUM
     Indication: GASTROOESOPHAGEAL REFLUX DISEASE
     Route: 048
     Dates: start: 2002
  42. FAMOTIDINE. [Concomitant]
     Active Substance: FAMOTIDINE
  43. EFFEXOR [Concomitant]
     Active Substance: VENLAFAXINE HYDROCHLORIDE
  44. POTASSIUM CHLORIDE. [Concomitant]
     Active Substance: POTASSIUM CHLORIDE
  45. VITAMIN E [Concomitant]
     Active Substance: .ALPHA.-TOCOPHEROL
  46. TIZANIDINE. [Concomitant]
     Active Substance: TIZANIDINE
  47. FLONASE [Concomitant]
     Active Substance: FLUTICASONE PROPIONATE
  48. COLACE [Concomitant]
     Active Substance: DOCUSATE SODIUM
  49. CYMBALTA [Concomitant]
     Active Substance: DULOXETINE HYDROCHLORIDE
  50. IMITREX [Concomitant]
     Active Substance: SUMATRIPTAN SUCCINATE
  51. JANUVIA [Concomitant]
     Active Substance: SITAGLIPTIN PHOSPHATE
     Route: 048
  52. DRISDOL [Concomitant]
     Active Substance: ERGOCALCIFEROL
     Route: 048
  53. ZESTRIL [Concomitant]
     Active Substance: LISINOPRIL
     Route: 048
  54. MINIPRESS [Concomitant]
     Active Substance: PRAZOSIN HYDROCHLORIDE
     Route: 048
  55. NEXIUM [Suspect]
     Active Substance: ESOMEPRAZOLE MAGNESIUM
     Indication: GASTROOESOPHAGEAL REFLUX DISEASE
     Route: 048
  56. CHOLECALCIFEROL [Concomitant]
     Active Substance: CHOLECALCIFEROL
  57. IBUPROFEN. [Concomitant]
     Active Substance: IBUPROFEN
     Indication: PAIN
  58. MULTIVITAMIN [Concomitant]
     Active Substance: VITAMINS
     Indication: HYPOVITAMINOSIS
     Dates: start: 2015
  59. LYRICA [Concomitant]
     Active Substance: PREGABALIN

REACTIONS (5)
  - Chronic kidney disease [Unknown]
  - Anxiety [Unknown]
  - Acute kidney injury [Not Recovered/Not Resolved]
  - Incontinence [Not Recovered/Not Resolved]
  - Depression [Unknown]

NARRATIVE: CASE EVENT DATE: 2001
